FAERS Safety Report 8765977 (Version 1)
Quarter: 2012Q4

REPORT INFORMATION
  Report Type: 
  Country: US (occurrence: US)
  Receive Date: 20120904
  Receipt Date: 20120904
  Transmission Date: 20130627
  Serious: Yes (Other)
  Sender: FDA-Public Use
  Company Number: US-009507513-1011USA00800

PATIENT

DRUGS (1)
  1. FOSAMAX [Suspect]
     Indication: OSTEOPOROSIS
     Dosage: 70 mg, QW
     Route: 048
     Dates: start: 20060725, end: 20080901

REACTIONS (42)
  - Osteonecrosis of jaw [Unknown]
  - Depression [Unknown]
  - Anxiety [Unknown]
  - Insomnia [Unknown]
  - Tooth disorder [Unknown]
  - Impaired healing [Unknown]
  - Gingival bleeding [Unknown]
  - Stomatitis [Unknown]
  - Tooth infection [Unknown]
  - Sinusitis [Unknown]
  - Facial pain [Unknown]
  - Headache [Unknown]
  - Sinus polyp [Unknown]
  - Tooth abscess [Unknown]
  - Sinusitis [Unknown]
  - Oral fibroma [Unknown]
  - Oral fibroma [Unknown]
  - Dizziness [Unknown]
  - Drug hypersensitivity [Unknown]
  - Allergy to chemicals [Unknown]
  - Osteoarthritis [Unknown]
  - Blood cholesterol increased [Unknown]
  - Hypothyroidism [Unknown]
  - Iron deficiency anaemia [Unknown]
  - Palatal disorder [Unknown]
  - Pyogenic granuloma [Unknown]
  - Jaw disorder [Unknown]
  - Dental necrosis [Unknown]
  - Asthenia [Unknown]
  - Exercise tolerance decreased [Unknown]
  - Dyspnoea [Unknown]
  - Uterine prolapse [Unknown]
  - Sensitivity of teeth [Unknown]
  - Dry mouth [Unknown]
  - Neck pain [Unknown]
  - Ear pain [Unknown]
  - Rheumatoid arthritis [Unknown]
  - Pain [Unknown]
  - Mouth haemorrhage [Unknown]
  - Impaired healing [Unknown]
  - Dental necrosis [Unknown]
  - Gingival bleeding [Unknown]
